FAERS Safety Report 7884709-3 (Version None)
Quarter: 2011Q4

REPORT INFORMATION
  Report Type: 
  Country: None (occurrence: None)
  Receive Date: 20111102
  Receipt Date: 20111031
  Transmission Date: 20120403
  Serious: Yes (Disabling, Other)
  Sender: FDA-Public Use
  Company Number: BR-ABBOTT-11P-020-0866390-00

PATIENT
  Sex: Female
  Weight: 62 kg

DRUGS (8)
  1. CYMBALTA [Concomitant]
     Indication: DEPRESSION
  2. ALGINAC [Concomitant]
     Indication: RHEUMATOID ARTHRITIS
     Dosage: CYANOCOBALAMIN + THIAMINE MONONITRATE + PYRIDOXINE HYDROCHLORIDE + DICLOFENAC SODIUM
  3. HUMIRA [Suspect]
     Indication: PRODUCT USED FOR UNKNOWN INDICATION
     Route: 058
  4. UNSPECIFIED MEDICINE (REPORTED AS DICLOSAN) [Concomitant]
     Indication: RHEUMATOID ARTHRITIS
  5. UNKNOWN ANTIDEPRESSANT MEDICATION [Suspect]
     Indication: PRODUCT USED FOR UNKNOWN INDICATION
  6. OMEPRAZOLE [Concomitant]
     Indication: PRODUCT USED FOR UNKNOWN INDICATION
  7. PREDNISONE [Concomitant]
     Indication: RHEUMATOID ARTHRITIS
  8. CLONAZEPAM [Concomitant]
     Indication: SLEEP DISORDER

REACTIONS (15)
  - CARPAL TUNNEL SYNDROME [None]
  - PAIN [None]
  - OEDEMA PERIPHERAL [None]
  - MUSCLE ATROPHY [None]
  - CYST [None]
  - CHONDROPATHY [None]
  - FOOT DEFORMITY [None]
  - BLISTER [None]
  - JOINT SWELLING [None]
  - PRURITUS [None]
  - HYPERSENSITIVITY [None]
  - SYNOVIAL CYST [None]
  - ACTIVITIES OF DAILY LIVING IMPAIRED [None]
  - FIBROMYALGIA [None]
  - VISION BLURRED [None]
